FAERS Safety Report 6839241-2 (Version None)
Quarter: 2010Q3

REPORT INFORMATION
  Report Type: 
  Country: None (occurrence: None)
  Receive Date: 20100708
  Receipt Date: 20100625
  Transmission Date: 20110219
  Serious: Yes (Life-Threatening, Other)
  Sender: FDA-Public Use
  Company Number: 2010MA000329

PATIENT
  Age: 43 Year
  Sex: Female

DRUGS (10)
  1. MELOXICAM [Suspect]
     Indication: PAIN IN EXTREMITY
     Dosage: 15 MG; QD; PO
     Route: 048
     Dates: end: 20100612
  2. NITROGLYCERIN [Concomitant]
  3. TRINITRATE [Concomitant]
  4. RAMIPRIL [Concomitant]
  5. ATORVASTATIN CALCIUM [Concomitant]
  6. ACETYLSALICYLIC ACID [Concomitant]
  7. LORATADINE [Concomitant]
  8. OMEPRAZOLE [Concomitant]
  9. BISOPROLOL [Concomitant]
  10. PREV MEDS [Concomitant]

REACTIONS (2)
  - CORONARY ARTERY DISSECTION [None]
  - MYOCARDIAL INFARCTION [None]
